FAERS Safety Report 25824611 (Version 2)
Quarter: 2025Q4

REPORT INFORMATION
  Report Type: Spontaneous
  Country: US (occurrence: US)
  Receive Date: 20250919
  Receipt Date: 20251013
  Transmission Date: 20260118
  Serious: No
  Sender: SANOFI AVENTIS
  Company Number: US-SA-2025SA280990

PATIENT
  Age: 25 Year
  Sex: Male

DRUGS (3)
  1. ELOCTATE [Suspect]
     Active Substance: EFMOROCTOCOG ALFA
     Dosage: 6000 IU
     Route: 042
  2. ELOCTATE [Suspect]
     Active Substance: EFMOROCTOCOG ALFA
     Dosage: 6000 IU
     Route: 042
  3. HEMLIBRA [Concomitant]
     Active Substance: EMICIZUMAB-KXWH
     Dosage: UNK

REACTIONS (2)
  - Haemorrhage [Recovered/Resolved]
  - Malaise [Unknown]

NARRATIVE: CASE EVENT DATE: 20250909
